FAERS Safety Report 17706405 (Version 3)
Quarter: 2020Q2

REPORT INFORMATION
  Report Type: Spontaneous
  Country: US (occurrence: US)
  Receive Date: 20200424
  Receipt Date: 20200529
  Transmission Date: 20200714
  Serious: Yes (Hospitalization, Other)
  Sender: FDA-Public Use
  Company Number: NVSC2020US106984

PATIENT
  Age: 67 Year
  Sex: Male

DRUGS (3)
  1. PIPERACILINA + TAZOBACTAM [Concomitant]
     Active Substance: PIPERACILLIN SODIUM\TAZOBACTAM SODIUM
     Indication: PNEUMONIA ASPIRATION
     Dosage: UNK
     Route: 065
  2. PEMBROLIZUMAB. [Suspect]
     Active Substance: PEMBROLIZUMAB
     Indication: DIFFUSE LARGE B-CELL LYMPHOMA REFRACTORY
     Dosage: 200 MG
     Route: 042
  3. TISAGENLECLEUCEL. [Suspect]
     Active Substance: TISAGENLECLEUCEL
     Indication: DIFFUSE LARGE B-CELL LYMPHOMA REFRACTORY
     Dosage: UNK
     Route: 065

REACTIONS (6)
  - Immune-mediated pneumonitis [Unknown]
  - Diffuse large B-cell lymphoma refractory [Unknown]
  - Acute lung injury [Unknown]
  - Neurotoxicity [Unknown]
  - Respiratory failure [Unknown]
  - Malignant neoplasm progression [Unknown]
